FAERS Safety Report 5366915-5 (Version None)
Quarter: 2007Q2

REPORT INFORMATION
  Report Type: 
  Country: None (occurrence: None)
  Receive Date: 20070622
  Receipt Date: 20070215
  Transmission Date: 20071010
  Serious: No
  Sender: FDA-Public Use
  Company Number: US-ASTRAZENECA-2007UW03040

PATIENT
  Age: 65 Year
  Sex: Female
  Weight: 72.6 kg

DRUGS (9)
  1. RHINOCORT [Suspect]
     Indication: NASAL INFLAMMATION
     Route: 045
     Dates: start: 20070214
  2. ADVAIR DISKUS 100/50 [Concomitant]
     Dosage: 250/50
  3. ALBUTEROL [Concomitant]
  4. ZESTRIL [Concomitant]
  5. HYDROCHLOROTHIAZIDE [Concomitant]
  6. ZILACORE XR [Concomitant]
  7. EFFEXOR [Concomitant]
  8. KLONOPIN [Concomitant]
  9. TAGAMET [Concomitant]

REACTIONS (4)
  - FEELING ABNORMAL [None]
  - HEART RATE INCREASED [None]
  - HYPERTENSION [None]
  - INSOMNIA [None]
